FAERS Safety Report 5469395-4 (Version None)
Quarter: 2007Q3

REPORT INFORMATION
  Report Type: 
  Country: None (occurrence: None)
  Receive Date: 20070924
  Receipt Date: 20070520
  Transmission Date: 20080115
  Serious: No
  Sender: FDA-Public Use
  Company Number: TIF2007A00170

PATIENT
  Age: 41 Year
  Sex: Female

DRUGS (2)
  1. LANSOX (LANSOPRAZOLE) (CAPSULES) [Suspect]
     Indication: DRUG USE FOR UNKNOWN INDICATION
     Dosage: 30 MG (30 MG, 1 IN 1 D)
     Route: 048
     Dates: start: 20070309, end: 20070329
  2. LANSOX (LANSOPRAZOLE) (CAPSULES) [Suspect]
     Indication: DRUG USE FOR UNKNOWN INDICATION
     Dosage: 30 MG (30 MG, 1 IN 1 D)
     Route: 048
     Dates: start: 20070415, end: 20070425

REACTIONS (5)
  - DIZZINESS [None]
  - EYE DISORDER [None]
  - PRESYNCOPE [None]
  - VERTIGO [None]
  - VOMITING [None]
